FAERS Safety Report 6376817-3 (Version None)
Quarter: 2009Q3

REPORT INFORMATION
  Report Type: 
  Country: None (occurrence: None)
  Receive Date: 20090924
  Receipt Date: 20090924
  Transmission Date: 20100115
  Serious: Yes (Hospitalization)
  Sender: FDA-Public Use
  Company Number: None

PATIENT
  Age: 71 Year
  Sex: Male
  Weight: 79.8 kg

DRUGS (4)
  1. DASATINIB 70MG [Suspect]
     Indication: ADENOCARCINOMA
     Dosage: 70MG BID X 6WKS PO
     Route: 048
     Dates: start: 20090903, end: 20090921
  2. OXYCODONE [Concomitant]
  3. ASTELIN NASAL [Concomitant]
  4. SINGULAIR [Concomitant]

REACTIONS (2)
  - ATELECTASIS [None]
  - PLEURAL EFFUSION [None]
